FAERS Safety Report 10215382 (Version 1)
Quarter: 2014Q2

REPORT INFORMATION
  Report Type: Spontaneous
  Country: US (occurrence: US)
  Receive Date: 20140604
  Receipt Date: 20140604
  Transmission Date: 20141212
  Serious: Yes (Congenital Anomaly)
  Sender: FDA-Public Use
  Company Number: US-009507513-1406USA000516

PATIENT
  Sex: 0

DRUGS (1)
  1. IMPLANON [Suspect]
     Indication: CONTRACEPTION
     Route: 064

REACTIONS (2)
  - Turner^s syndrome [Unknown]
  - Foetal exposure during pregnancy [Recovered/Resolved]
